FAERS Safety Report 25404202 (Version 2)
Quarter: 2025Q3

REPORT INFORMATION
  Report Type: Spontaneous
  Country: US (occurrence: US)
  Receive Date: 20250606
  Receipt Date: 20250822
  Transmission Date: 20251021
  Serious: Yes (Other)
  Sender: JOHNSON AND JOHNSON
  Company Number: US-JNJFOC-20250535614

PATIENT
  Sex: Female

DRUGS (3)
  1. INVEGA [Suspect]
     Active Substance: PALIPERIDONE
     Indication: Product used for unknown indication
     Route: 030
  2. INVEGA [Suspect]
     Active Substance: PALIPERIDONE
  3. INVEGA [Suspect]
     Active Substance: PALIPERIDONE

REACTIONS (24)
  - Suicidal ideation [Unknown]
  - Somnolence [Unknown]
  - Cognitive disorder [Unknown]
  - Cardiac disorder [Unknown]
  - Body temperature abnormal [Unknown]
  - Weight increased [Unknown]
  - Headache [Unknown]
  - Dizziness [Unknown]
  - Back pain [Unknown]
  - Pain [Unknown]
  - Sedation [Unknown]
  - Diarrhoea [Unknown]
  - Dry mouth [Unknown]
  - Nausea [Unknown]
  - Fatigue [Unknown]
  - Agitation [Unknown]
  - Nightmare [Unknown]
  - Muscle rigidity [Unknown]
  - Musculoskeletal stiffness [Unknown]
  - Muscle tightness [Unknown]
  - Increased appetite [Unknown]
  - Skin reaction [Unknown]
  - Skin exfoliation [Unknown]
  - Rash [Unknown]
